FAERS Safety Report 10464127 (Version 1)
Quarter: 2014Q3

REPORT INFORMATION
  Report Type: Spontaneous
  Country: US (occurrence: None)
  Receive Date: 20140918
  Receipt Date: 20140918
  Transmission Date: 20150326
  Serious: Yes (Other)
  Sender: FDA-Public Use
  Company Number: None

PATIENT
  Age: 68 Year
  Sex: Female
  Weight: 81.65 kg

DRUGS (1)
  1. URSODIOL. [Suspect]
     Active Substance: URSODIOL
     Indication: BILIARY CIRRHOSIS PRIMARY
     Dosage: 1 CAPSULE  QID  ORAL
     Route: 048
     Dates: start: 20140601, end: 20140901

REACTIONS (3)
  - Hepatomegaly [None]
  - Abdominal pain upper [None]
  - Hyperhidrosis [None]

NARRATIVE: CASE EVENT DATE: 20140901
